FAERS Safety Report 25174798 (Version 2)
Quarter: 2025Q2

REPORT INFORMATION
  Report Type: Spontaneous
  Country: DE (occurrence: DE)
  Receive Date: 20250408
  Receipt Date: 20250410
  Transmission Date: 20250717
  Serious: Yes (Other)
  Sender: BIOMARIN
  Company Number: DE-BIOMARINAP-DE-2025-165024

PATIENT

DRUGS (1)
  1. NAGLAZYME [Suspect]
     Active Substance: GALSULFASE
     Indication: Mucopolysaccharidosis VI
     Dosage: 12.5 MILLIGRAM, QW
     Route: 042

REACTIONS (3)
  - Spinal decompression [Unknown]
  - Sitting disability [Unknown]
  - Gait disturbance [Unknown]

NARRATIVE: CASE EVENT DATE: 20250326
